FAERS Safety Report 4791034-6 (Version None)
Quarter: 2005Q4

REPORT INFORMATION
  Report Type: 
  Country: None (occurrence: None)
  Receive Date: 20051007
  Receipt Date: 20051003
  Transmission Date: 20060501
  Serious: Yes (Death)
  Sender: FDA-Public Use
  Company Number: GB-JNJFOC-20051000332

PATIENT
  Age: 60 Year
  Sex: Male

DRUGS (3)
  1. DURAGESIC-50 [Suspect]
     Route: 062
  2. DURAGESIC-50 [Suspect]
     Indication: CANCER PAIN
     Route: 062
  3. OROMORPH [Concomitant]
     Route: 065

REACTIONS (2)
  - DEATH [None]
  - OVERDOSE [None]
